FAERS Safety Report 13363341 (Version 2)
Quarter: 2019Q1

REPORT INFORMATION
  Report Type: Report from Study
  Country: US (occurrence: US)
  Receive Date: 20170323
  Receipt Date: 20190311
  Transmission Date: 20190417
  Serious: Yes (Other)
  Sender: FDA-Public Use
  Company Number: US-ALLERGAN-1681814US

PATIENT
  Sex: Female

DRUGS (1)
  1. NEBIVOLOL HCL 10MG TAB [Suspect]
     Active Substance: NEBIVOLOL
     Indication: HYPERTENSION
     Dosage: 10 MG, QD
     Route: 048

REACTIONS (5)
  - Depression [Unknown]
  - Performance status decreased [Unknown]
  - Cerebral disorder [Unknown]
  - Fatigue [Unknown]
  - Anxiety [Unknown]
